FAERS Safety Report 10456365 (Version 1)
Quarter: 2014Q3

REPORT INFORMATION
  Report Type: Spontaneous
  Country: US (occurrence: None)
  Receive Date: 20140822
  Receipt Date: 20140822
  Transmission Date: 20150326
  Serious: Yes (Other)
  Sender: FDA-Public Use
  Company Number: HA13-265-AE

PATIENT
  Age: 82 Year
  Sex: Female
  Weight: 39.92 kg

DRUGS (7)
  1. TENORMIN [Concomitant]
     Active Substance: ATENOLOL
  2. AMLODIPINE [Concomitant]
     Active Substance: AMLODIPINE BESYLATE
  3. SYNTHROID [Concomitant]
     Active Substance: LEVOTHYROXINE SODIUM
  4. TRAMADOL HYDROCHLORIDE. [Suspect]
     Active Substance: TRAMADOL HYDROCHLORIDE
     Indication: BLOOD PRESSURE ABNORMAL
     Dosage: 5 DAYS AGO-ONGOING 1 TABLET, AT NIGHT, ORAL
     Route: 048
  5. POTASSIUM CHLORIDE. [Concomitant]
     Active Substance: POTASSIUM CHLORIDE
  6. PLAVIX [Concomitant]
     Active Substance: CLOPIDOGREL BISULFATE
  7. BABY ASPIRIN [Concomitant]
     Active Substance: ASPIRIN

REACTIONS (2)
  - Drug ineffective [None]
  - Heart rate irregular [None]
